FAERS Safety Report 4686013-3 (Version None)
Quarter: 2005Q2

REPORT INFORMATION
  Report Type: 
  Country: None (occurrence: None)
  Receive Date: 20050606
  Receipt Date: 20050527
  Transmission Date: 20051028
  Serious: Yes (Other)
  Sender: FDA-Public Use
  Company Number: 214842

PATIENT
  Age: 53 Year
  Sex: Male

DRUGS (1)
  1. XOLAIR [Suspect]
     Indication: ASTHMA
     Dosage: 1/WEEK, SUBCUTANEOUS
     Route: 058
     Dates: start: 20050302

REACTIONS (7)
  - CYANOSIS [None]
  - DIFFICULTY IN WALKING [None]
  - GANGRENE [None]
  - HYPOAESTHESIA [None]
  - PARAESTHESIA [None]
  - PERONEAL NERVE PALSY [None]
  - VASCULITIS [None]
